FAERS Safety Report 6821945-9 (Version None)
Quarter: 2010Q3

REPORT INFORMATION
  Report Type: 
  Country: None (occurrence: None)
  Receive Date: 20100708
  Receipt Date: 20100629
  Transmission Date: 20110219
  Serious: No
  Sender: FDA-Public Use
  Company Number: US-BIOGENIDEC-2010BI022393

PATIENT
  Age: 62 Year
  Sex: Female

DRUGS (2)
  1. TYSABRI [Suspect]
     Indication: MULTIPLE SCLEROSIS
     Route: 042
     Dates: start: 20050221, end: 20050228
  2. TYSABRI [Suspect]
     Route: 042
     Dates: start: 20070307

REACTIONS (4)
  - HAEMATOMA [None]
  - PAIN [None]
  - POOR VENOUS ACCESS [None]
  - VENOUS INJURY [None]
